FAERS Safety Report 4323527-X (Version None)
Quarter: 2004Q1

REPORT INFORMATION
  Report Type: 
  Country: None (occurrence: None)
  Receive Date: 20040324
  Receipt Date: 20040324
  Transmission Date: 20041129
  Serious: Yes (Other)
  Sender: FDA-Public Use
  Company Number: None

PATIENT
  Sex: Female
  Weight: 104.3273 kg

DRUGS (2)
  1. CELEXA [Suspect]
     Indication: DEPRESSION
     Dosage: 20 MG DAILY ORAL
     Route: 048
     Dates: start: 20000315, end: 20040223
  2. CELEXA [Suspect]
     Indication: THINKING ABNORMAL
     Dosage: 20 MG DAILY ORAL
     Route: 048
     Dates: start: 20000315, end: 20040223

REACTIONS (3)
  - ABNORMAL BEHAVIOUR [None]
  - MEMORY IMPAIRMENT [None]
  - THINKING ABNORMAL [None]
